FAERS Safety Report 6289024-X (Version None)
Quarter: 2009Q3

REPORT INFORMATION
  Report Type: 
  Country: None (occurrence: None)
  Receive Date: 20090727
  Receipt Date: 20090713
  Transmission Date: 20100115
  Serious: No
  Sender: FDA-Public Use
  Company Number: 2009-200723-NL

PATIENT
  Sex: Male

DRUGS (3)
  1. DEXAMETHASONE [Suspect]
  2. VINCRISTINE [Suspect]
  3. ASPARAGINASE [Suspect]

REACTIONS (7)
  - CATHETER THROMBOSIS [None]
  - CEREBRAL ARTERY THROMBOSIS [None]
  - CEREBRAL VENOUS THROMBOSIS [None]
  - DEEP VEIN THROMBOSIS [None]
  - PORTAL VEIN THROMBOSIS [None]
  - RENAL VEIN THROMBOSIS [None]
  - THROMBOSIS [None]
